FAERS Safety Report 12954373 (Version 1)
Quarter: 2016Q4

REPORT INFORMATION
  Report Type: Spontaneous
  Country: US (occurrence: US)
  Receive Date: 20161117
  Receipt Date: 20161117
  Transmission Date: 20170207
  Serious: Yes (Hospitalization)
  Sender: FDA-Public Use
  Company Number: None

PATIENT
  Age: 45 Year
  Sex: Male
  Weight: 58.69 kg

DRUGS (2)
  1. BUPROPION. [Suspect]
     Active Substance: BUPROPION
     Indication: DEPRESSION
     Route: 048
     Dates: start: 20151005, end: 20160601
  2. SUMATRIPTAN. [Suspect]
     Active Substance: SUMATRIPTAN
     Route: 030
     Dates: start: 20120201

REACTIONS (2)
  - Serotonin syndrome [None]
  - Seizure [None]

NARRATIVE: CASE EVENT DATE: 20160627
